FAERS Safety Report 21146709 (Version 1)
Quarter: 2022Q3

REPORT INFORMATION
  Report Type: Spontaneous
  Country: US (occurrence: US)
  Receive Date: 20220729
  Receipt Date: 20220729
  Transmission Date: 20221027
  Serious: Yes (Other)
  Sender: FDA-Public Use
  Company Number: US-MYLANLABS-2022M1081057

PATIENT
  Age: 60 Year
  Sex: Male

DRUGS (15)
  1. LEVETIRACETAM [Suspect]
     Active Substance: LEVETIRACETAM
     Indication: Partial seizures
     Dosage: 3000 MILLIGRAM, QD
     Route: 065
  2. VALPROIC ACID [Suspect]
     Active Substance: VALPROIC ACID
     Indication: Partial seizures
     Dosage: 2000 MILLIGRAM, QD
     Route: 065
  3. LAMOTRIGINE [Suspect]
     Active Substance: LAMOTRIGINE
     Indication: Partial seizures
     Dosage: 300 MILLIGRAM, QD
     Route: 065
  4. CLONAZEPAM [Suspect]
     Active Substance: CLONAZEPAM
     Indication: Partial seizures
     Dosage: 1 MILLIGRAM, QD, CLONAZEPAM 1 MG/NIGHT
     Route: 065
  5. LACOSAMIDE [Suspect]
     Active Substance: LACOSAMIDE
     Indication: Partial seizures
     Dosage: 600 MILLIGRAM, QD
     Route: 065
  6. LACOSAMIDE [Suspect]
     Active Substance: LACOSAMIDE
     Dosage: UNK (DOSE DECREASED)
     Route: 065
  7. TIAGABINE [Interacting]
     Active Substance: TIAGABINE
     Indication: Partial seizures
     Dosage: UNK
     Route: 065
  8. TIAGABINE [Interacting]
     Active Substance: TIAGABINE
     Dosage: 48 MILLIGRAM, QD (TITRATED TO 48 MG/DAY)
     Route: 065
  9. TIAGABINE [Interacting]
     Active Substance: TIAGABINE
     Dosage: UNK, QD, TIAGABINE WAS DECREASED BY ONLY HALF TABLET
     Route: 065
  10. PERAMPANEL [Interacting]
     Active Substance: PERAMPANEL
     Indication: Partial seizures
     Dosage: 16 MILLIGRAM, QD, (PERAMPANEL 16MG PER NIGHT)
     Route: 065
  11. PERAMPANEL [Interacting]
     Active Substance: PERAMPANEL
     Dosage: 12 MILLIGRAM, QD (PERAMPANEL WAS REDUCED TO 12MG PER NIGHT)
     Route: 065
  12. PERAMPANEL [Interacting]
     Active Substance: PERAMPANEL
     Dosage: 8 MILLIGRAM, QD (PERAMPANEL WAS REDUCED TO 8 MG/DAY)
     Route: 065
  13. CANNABIDIOL [Interacting]
     Active Substance: CANNABIDIOL
     Indication: Partial seizures
     Dosage: 150 MILLIGRAM, QD
     Route: 065
  14. EPIDIOLEX [Interacting]
     Active Substance: CANNABIDIOL
     Indication: Partial seizures
     Dosage: UNK
     Route: 065
  15. EPIDIOLEX [Interacting]
     Active Substance: CANNABIDIOL
     Dosage: 20 MILLIGRAM/KILOGRAM, QD (TITRATED TO 20 MG/KG/DAY)
     Route: 065

REACTIONS (1)
  - Drug ineffective [Unknown]
